FAERS Safety Report 23895543 (Version 1)
Quarter: 2024Q2

REPORT INFORMATION
  Report Type: Report from Study
  Country: CN (occurrence: CN)
  Receive Date: 20240524
  Receipt Date: 20240524
  Transmission Date: 20240716
  Serious: Yes (Other)
  Sender: FDA-Public Use
  Company Number: CN-Accord-425710

PATIENT
  Age: 4 Year
  Sex: Female

DRUGS (8)
  1. ETOPOSIDE [Suspect]
     Active Substance: ETOPOSIDE
     Indication: Haemophagocytic lymphohistiocytosis
  2. ASPARAGINASE [Suspect]
     Active Substance: ASPARAGINASE
     Indication: Haemophagocytic lymphohistiocytosis
  3. DOXORUBICIN [Suspect]
     Active Substance: DOXORUBICIN
     Indication: Haemophagocytic lymphohistiocytosis
  4. METHYLPREDNISOLONE [Suspect]
     Active Substance: METHYLPREDNISOLONE
     Indication: Haemophagocytic lymphohistiocytosis
  5. ETOPOSIDE [Suspect]
     Active Substance: ETOPOSIDE
     Indication: Epstein-Barr virus infection
  6. ASPARAGINASE [Suspect]
     Active Substance: ASPARAGINASE
     Indication: Epstein-Barr virus infection
  7. DOXORUBICIN [Suspect]
     Active Substance: DOXORUBICIN
     Indication: Epstein-Barr virus infection
  8. METHYLPREDNISOLONE [Suspect]
     Active Substance: METHYLPREDNISOLONE
     Indication: Epstein-Barr virus infection

REACTIONS (3)
  - Granulocytopenia [Unknown]
  - Deep vein thrombosis [Recovered/Resolved]
  - Pancreatic enzymes increased [Recovered/Resolved]
